FAERS Safety Report 20720176 (Version 6)
Quarter: 2022Q4

REPORT INFORMATION
  Report Type: Spontaneous
  Country: US (occurrence: US)
  Receive Date: 20220418
  Receipt Date: 20221226
  Transmission Date: 20230113
  Serious: No
  Sender: FDA-Public Use
  Company Number: US-SA-SAC20220418000103

PATIENT
  Age: 26 Year
  Sex: Female

DRUGS (4)
  1. FABRAZYME [Suspect]
     Active Substance: AGALSIDASE BETA
     Indication: Fabry^s disease
     Dosage: 35 MG, QOW
     Route: 041
     Dates: start: 20210223
  2. FABRAZYME [Suspect]
     Active Substance: AGALSIDASE BETA
     Dosage: 35 MG, QOW
     Route: 041
     Dates: start: 20220124
  3. FABRAZYME [Suspect]
     Active Substance: AGALSIDASE BETA
     Dosage: 25 MG, QOW
     Route: 058
     Dates: start: 202102
  4. FABRAZYME [Suspect]
     Active Substance: AGALSIDASE BETA
     Dosage: 60 MG, QOW; STRENGTH 5MG AND 35 MG
     Route: 041

REACTIONS (2)
  - Exposure during pregnancy [Unknown]
  - Incorrect route of product administration [Unknown]

NARRATIVE: CASE EVENT DATE: 20210201
